FAERS Safety Report 12379337 (Version 2)
Quarter: 2016Q2

REPORT INFORMATION
  Report Type: Spontaneous
  Country: JP (occurrence: JP)
  Receive Date: 20160517
  Receipt Date: 20160526
  Transmission Date: 20160815
  Serious: Yes (Hospitalization, Other)
  Sender: FDA-Public Use
  Company Number: JP-ALLERGAN-1657116US

PATIENT
  Age: 25 Year
  Sex: Female

DRUGS (2)
  1. BOTOX [Suspect]
     Active Substance: ONABOTULINUMTOXINA
     Indication: MUSCLE HYPERTROPHY
     Dosage: 1 ML, QD
     Route: 030
     Dates: start: 20160323, end: 20160323
  2. BOTOX [Suspect]
     Active Substance: ONABOTULINUMTOXINA
     Indication: BRUXISM

REACTIONS (6)
  - Off label use [Unknown]
  - Abortion spontaneous [Unknown]
  - Abortion threatened [Unknown]
  - Vaginitis bacterial [Unknown]
  - Uterine haemorrhage [Unknown]
  - Pregnancy [Unknown]

NARRATIVE: CASE EVENT DATE: 20160405
